FAERS Safety Report 6200149-7 (Version None)
Quarter: 2009Q2

REPORT INFORMATION
  Report Type: 
  Country: None (occurrence: None)
  Receive Date: 20090522
  Receipt Date: 20090511
  Transmission Date: 20091009
  Serious: Yes (Other)
  Sender: FDA-Public Use
  Company Number: GB-JNJFOC-20080802351

PATIENT
  Age: 9 Year

DRUGS (2)
  1. PARACETAMOL [Suspect]
  2. PARACETAMOL [Suspect]
     Indication: DRUG USE FOR UNKNOWN INDICATION
     Dosage: 175 MG/KG/DAY FOR 7 DAYS

REACTIONS (2)
  - ACUTE HEPATIC FAILURE [None]
  - OVERDOSE [None]
